FAERS Safety Report 5777933-7 (Version None)
Quarter: 2008Q2

REPORT INFORMATION
  Report Type: 
  Country: None (occurrence: None)
  Receive Date: 20080617
  Receipt Date: 20080617
  Transmission Date: 20081010
  Serious: No
  Sender: FDA-Public Use
  Company Number: None

PATIENT
  Age: 84 Year
  Sex: Male
  Weight: 92.53 kg

DRUGS (1)
  1. MELOXICAM [Suspect]
     Indication: PAIN
     Dosage: 15 MG EVERY DAY PO
     Route: 048
     Dates: start: 20070117, end: 20080605

REACTIONS (2)
  - CONFUSIONAL STATE [None]
  - SEDATION [None]
